FAERS Safety Report 6509927-8 (Version None)
Quarter: 2009Q4

REPORT INFORMATION
  Report Type: 
  Country: None (occurrence: None)
  Receive Date: 20091222
  Receipt Date: 20091214
  Transmission Date: 20100525
  Serious: Yes (Hospitalization)
  Sender: FDA-Public Use
  Company Number: PHHY2009DE56311

PATIENT
  Sex: Female
  Weight: 81 kg

DRUGS (3)
  1. ALISKIREN ALI+ [Suspect]
     Indication: HYPERTENSION
     Dosage: 150 MG PER DAY
     Route: 048
     Dates: start: 20081201
  2. BELOC-ZOC COMP [Suspect]
     Indication: HYPERTENSION
     Dosage: UNK
     Route: 048
     Dates: start: 20051011
  3. LEVOTHYROXINE SODIUM [Concomitant]
     Indication: HYPOTHYROIDISM
     Dosage: 75 MCG/DAY
     Route: 048
     Dates: start: 19950101

REACTIONS (1)
  - CIRCULATORY COLLAPSE [None]
